FAERS Safety Report 23557203 (Version 1)
Quarter: 2024Q1

REPORT INFORMATION
  Report Type: Spontaneous
  Country: US (occurrence: US)
  Receive Date: 20240223
  Receipt Date: 20240223
  Transmission Date: 20240410
  Serious: No
  Sender: FDA-Public Use
  Company Number: US-BIOCON BIOLOGICS LIMITED-2023M1107050

PATIENT
  Age: 50 Year
  Sex: Female

DRUGS (2)
  1. SEMGLEE (INSULIN GLARGINE-YFGN) [Suspect]
     Active Substance: INSULIN GLARGINE-YFGN
     Indication: Diabetes mellitus
     Dosage: 20 INTERNATIONAL UNIT, BID (20 UNITS/ML TWICE DAILY)
     Route: 058
  2. DEVICE [Suspect]
     Active Substance: DEVICE
     Indication: Diabetes mellitus

REACTIONS (2)
  - Device defective [Unknown]
  - Product quality issue [Unknown]

NARRATIVE: CASE EVENT DATE: 20231007
